FAERS Safety Report 5393881-9 (Version None)
Quarter: 2007Q3

REPORT INFORMATION
  Report Type: 
  Country: None (occurrence: None)
  Receive Date: 20070723
  Receipt Date: 20070713
  Transmission Date: 20080115
  Serious: Yes (Hospitalization)
  Sender: FDA-Public Use
  Company Number: B0479948A

PATIENT
  Age: 67 Year
  Sex: Female

DRUGS (7)
  1. AUGMENTIN '125' [Suspect]
     Route: 048
     Dates: start: 20070418, end: 20070418
  2. CEFUROXIME AXETIL [Suspect]
     Route: 048
     Dates: start: 20070419, end: 20070419
  3. COAPROVEL [Concomitant]
     Indication: ESSENTIAL HYPERTENSION
     Route: 048
  4. EUTHYROX [Concomitant]
     Indication: THYROID DISORDER
     Route: 048
  5. NORVASC [Concomitant]
     Indication: ESSENTIAL HYPERTENSION
     Route: 048
  6. SERETIDE [Concomitant]
     Indication: ASTHMA
     Route: 055
  7. VENTOLIN [Concomitant]
     Indication: ASTHMA
     Route: 055

REACTIONS (4)
  - CONDITION AGGRAVATED [None]
  - DERMATITIS EXFOLIATIVE [None]
  - RASH MACULO-PAPULAR [None]
  - TOXIC SKIN ERUPTION [None]
